FAERS Safety Report 6660432-8 (Version None)
Quarter: 2010Q1

REPORT INFORMATION
  Report Type: 
  Country: None (occurrence: None)
  Receive Date: 20100331
  Receipt Date: 20100317
  Transmission Date: 20100710
  Serious: Yes (Hospitalization)
  Sender: FDA-Public Use
  Company Number: US-ELI_LILLY_AND_COMPANY-US201003004829

PATIENT
  Age: 83 Year
  Sex: Female

DRUGS (3)
  1. BYETTA [Suspect]
     Indication: TYPE 2 DIABETES MELLITUS
     Dosage: 10 UG, 2/D
     Route: 058
     Dates: start: 20090301
  2. METFORMIN (GLUCOPHAGE) [Concomitant]
     Indication: TYPE 2 DIABETES MELLITUS
  3. ANTIHYPERTENSIVES [Concomitant]

REACTIONS (1)
  - HOSPITALISATION [None]
